FAERS Safety Report 20802464 (Version 1)
Quarter: 2022Q2

REPORT INFORMATION
  Report Type: Spontaneous
  Country: US (occurrence: None)
  Receive Date: 20220507
  Receipt Date: 20220507
  Transmission Date: 20220721
  Serious: No
  Sender: FDA-Public Use
  Company Number: None

PATIENT
  Age: 12 Year
  Sex: Female
  Weight: 36 kg

DRUGS (1)
  1. MIRALAX [Suspect]
     Active Substance: POLYETHYLENE GLYCOL 3350
     Indication: Constipation
     Dosage: FREQUENCY : AS NEEDED;?
     Route: 048
     Dates: start: 20220426, end: 20220506

REACTIONS (2)
  - Tic [None]
  - Blepharospasm [None]

NARRATIVE: CASE EVENT DATE: 20220505
